FAERS Safety Report 5659314-X (Version None)
Quarter: 2008Q1

REPORT INFORMATION
  Report Type: 
  Country: None (occurrence: None)
  Receive Date: 20080311
  Receipt Date: 20070911
  Transmission Date: 20080703
  Serious: Yes (Other)
  Sender: FDA-Public Use
  Company Number: US-BAYER-200712210BCC

PATIENT
  Age: 68 Year
  Sex: Female
  Weight: 64 kg

DRUGS (4)
  1. ALEVE [Suspect]
     Indication: PAIN IN EXTREMITY
     Dosage: TOTAL DAILY DOSE: 440 MG  UNIT DOSE: 220 MG
     Route: 048
     Dates: start: 20070630
  2. INHALENT FOR ALLERGIES [Concomitant]
     Indication: SEASONAL ALLERGY
     Dates: start: 19950101
  3. VITA-LEA [Concomitant]
  4. CALCIUM [Concomitant]

REACTIONS (10)
  - ANAPHYLACTIC REACTION [None]
  - BURNING SENSATION [None]
  - DIZZINESS [None]
  - DYSPNOEA [None]
  - ERYTHEMA [None]
  - LIP SWELLING [None]
  - LOCAL SWELLING [None]
  - PRURITUS [None]
  - SWELLING FACE [None]
  - SWOLLEN TONGUE [None]
